FAERS Safety Report 19472071 (Version 1)
Quarter: 2021Q2

REPORT INFORMATION
  Report Type: Report from Study
  Country: US (occurrence: US)
  Receive Date: 20210629
  Receipt Date: 20210629
  Transmission Date: 20210717
  Serious: Yes (Hospitalization)
  Sender: FDA-Public Use
  Company Number: US-BAYER-2021-126227

PATIENT
  Age: 54 Year
  Sex: Female

DRUGS (2)
  1. ADEMPAS [Suspect]
     Active Substance: RIOCIGUAT
     Indication: PULMONARY ARTERIAL HYPERTENSION
     Dosage: 2.5 MG, TID
     Route: 048
     Dates: start: 20200807
  2. ADEMPAS [Suspect]
     Active Substance: RIOCIGUAT
     Indication: PULMONARY ARTERIAL HYPERTENSION
     Dosage: UNK

REACTIONS (8)
  - Product dose omission issue [None]
  - Nausea [None]
  - Gout [Recovered/Resolved]
  - Dehydration [Recovered/Resolved]
  - Confusional state [None]
  - Dehydration [None]
  - Hypokalaemia [Recovered/Resolved]
  - Vomiting [None]

NARRATIVE: CASE EVENT DATE: 20210405
